FAERS Safety Report 8625461-3 (Version None)
Quarter: 2012Q3

REPORT INFORMATION
  Report Type: 
  Country: None (occurrence: None)
  Receive Date: 20120827
  Receipt Date: 20120820
  Transmission Date: 20120928
  Serious: Yes (Hospitalization)
  Sender: FDA-Public Use
  Company Number: FR-ABBOTT-12P-056-0971028-00

PATIENT
  Sex: Male

DRUGS (13)
  1. ROXITROMYCINE [Suspect]
     Indication: LUNG DISORDER
     Route: 048
     Dates: start: 20120204, end: 20120209
  2. XENETIX 350 [Suspect]
     Indication: PRODUCT USED FOR UNKNOWN INDICATION
     Route: 042
     Dates: start: 20120208, end: 20120208
  3. IPRATROPIUM BROMIDE [Concomitant]
     Indication: PRODUCT USED FOR UNKNOWN INDICATION
  4. KAYEXALATE [Concomitant]
     Indication: PRODUCT USED FOR UNKNOWN INDICATION
  5. ZECLAR INJECTION [Suspect]
     Indication: LUNG DISORDER
     Dosage: 1 GRAM DAILY
     Route: 042
     Dates: start: 20120209, end: 20120214
  6. LOVENOX [Concomitant]
     Indication: PRODUCT USED FOR UNKNOWN INDICATION
  7. HYDROXYZINE [Concomitant]
     Indication: PRODUCT USED FOR UNKNOWN INDICATION
  8. AMOXICILLIN TRIHYDRATE [Suspect]
     Indication: LUNG DISORDER
     Route: 048
     Dates: start: 20120201, end: 20120209
  9. TERBUTALINE [Concomitant]
     Indication: PRODUCT USED FOR UNKNOWN INDICATION
  10. ACUPAN [Concomitant]
     Indication: PRODUCT USED FOR UNKNOWN INDICATION
  11. CEFTRIAXON [Suspect]
     Indication: LUNG DISORDER
     Dosage: 2 GRAM DAILY
     Route: 042
     Dates: start: 20120208, end: 20120214
  12. ACETAMINOPHEN AND CODEINE PHOSPHATE [Suspect]
     Indication: PAIN
     Route: 048
     Dates: start: 20120210, end: 20120214
  13. ACETAMINOPHEN [Concomitant]
     Indication: PRODUCT USED FOR UNKNOWN INDICATION

REACTIONS (2)
  - RASH MACULO-PAPULAR [None]
  - TOXIC SKIN ERUPTION [None]
